FAERS Safety Report 16938342 (Version 3)
Quarter: 2020Q1

REPORT INFORMATION
  Report Type: Report from Study
  Country: US (occurrence: US)
  Receive Date: 20191019
  Receipt Date: 20200316
  Transmission Date: 20200409
  Serious: Yes (Death, Other)
  Sender: FDA-Public Use
  Company Number: NVSC2019US005141

PATIENT
  Age: 72 Year
  Sex: Female

DRUGS (3)
  1. FLUDARABINE [Concomitant]
     Active Substance: FLUDARABINE PHOSPHATE
     Indication: CHEMOTHERAPY
     Route: 065
  2. CYCLOPHOSPHAMIDE. [Concomitant]
     Active Substance: CYCLOPHOSPHAMIDE
     Indication: CHEMOTHERAPY
     Route: 065
  3. KYMRIAH [Suspect]
     Active Substance: TISAGENLECLEUCEL
     Indication: HIGH-GRADE B-CELL LYMPHOMA
     Dosage: UNK UNK, ONCE/SINGLE
     Route: 041
     Dates: start: 2019

REACTIONS (11)
  - Depressed level of consciousness [Unknown]
  - Tremor [Unknown]
  - Cytopenia [Unknown]
  - Cytokine release syndrome [Recovered/Resolved]
  - Hypotension [Unknown]
  - Hypoxia [Unknown]
  - Encephalopathy [Unknown]
  - High-grade B-cell lymphoma [Fatal]
  - Malignant neoplasm progression [Fatal]
  - Pyrexia [Unknown]
  - Neurotoxicity [Recovered/Resolved]
